FAERS Safety Report 25272591 (Version 1)
Quarter: 2025Q2

REPORT INFORMATION
  Report Type: Spontaneous
  Country: JP (occurrence: JP)
  Receive Date: 20250506
  Receipt Date: 20250506
  Transmission Date: 20250717
  Serious: Yes (Death)
  Sender: REGENERON
  Company Number: JP-BAYER-2025A059873

PATIENT
  Age: 80 Year
  Sex: Male

DRUGS (1)
  1. EYLEA [Suspect]
     Active Substance: AFLIBERCEPT
     Indication: Age-related macular degeneration
     Route: 031

REACTIONS (2)
  - Death [Fatal]
  - Vitreous haemorrhage [Recovering/Resolving]
